FAERS Safety Report 4863949-1 (Version None)
Quarter: 2005Q4

REPORT INFORMATION
  Report Type: 
  Country: None (occurrence: None)
  Receive Date: 20051219
  Receipt Date: 20051207
  Transmission Date: 20060501
  Serious: Yes (Other)
  Sender: FDA-Public Use
  Company Number: HQWYE895607DEC05

PATIENT
  Age: 68 Year
  Sex: Female

DRUGS (7)
  1. CORDARONE [Suspect]
     Indication: ARRHYTHMIA
     Dosage: 200 MG 1X PER 1 DAY ORAL
     Route: 048
     Dates: start: 20030501, end: 20041101
  2. INIPOMP (PANTOPRAZOLE, TABLET) [Suspect]
     Dosage: ORAL
     Route: 048
  3. CARDIOCOR (BISOPROLOL) [Concomitant]
  4. DIGOXIN [Concomitant]
  5. ALDACTONE [Concomitant]
  6. SINTROM [Concomitant]
  7. CHONDROSULF (CHONDROITIN SULFATE SODIUM) [Concomitant]

REACTIONS (1)
  - HYPERTHYROIDISM [None]
